FAERS Safety Report 6056233-4 (Version None)
Quarter: 2009Q1

REPORT INFORMATION
  Report Type: 
  Country: None (occurrence: None)
  Receive Date: 20090129
  Receipt Date: 20090119
  Transmission Date: 20090719
  Serious: Yes (Life-Threatening, Other)
  Sender: FDA-Public Use
  Company Number: FR-BAXTER-2008BH000636

PATIENT
  Age: 39 Year
  Sex: Male

DRUGS (17)
  1. ADVATE [Suspect]
     Indication: FACTOR VIII DEFICIENCY
     Route: 042
     Dates: start: 20061015
  2. ADVATE [Suspect]
     Route: 042
     Dates: start: 20061101, end: 20061201
  3. ADVATE [Suspect]
     Route: 042
     Dates: start: 20061201
  4. ADVATE [Suspect]
     Route: 042
     Dates: start: 20070101
  5. ADVATE [Suspect]
     Route: 042
     Dates: start: 20070201
  6. ADVATE [Suspect]
     Route: 042
     Dates: start: 20070301
  7. ADVATE [Suspect]
     Route: 042
     Dates: start: 20070401
  8. ADVATE [Suspect]
     Route: 042
     Dates: start: 20070501
  9. ADVATE [Suspect]
     Route: 042
     Dates: start: 20070601
  10. ADVATE [Suspect]
     Route: 042
     Dates: start: 20070601
  11. ADVATE [Suspect]
     Route: 042
     Dates: start: 20070701, end: 20070801
  12. ADVATE [Suspect]
     Route: 042
     Dates: start: 20070801
  13. ADVATE [Suspect]
     Route: 042
     Dates: start: 20070801
  14. ADVATE [Suspect]
     Route: 042
     Dates: start: 20070901
  15. ADVATE [Suspect]
     Route: 042
     Dates: start: 20071001, end: 20071101
  16. ADVATE [Suspect]
     Route: 042
     Dates: start: 20071001, end: 20071101
  17. ADVATE [Suspect]
     Route: 042
     Dates: start: 20071101, end: 20071213

REACTIONS (3)
  - DRUG INEFFECTIVE [None]
  - FACTOR VIII INHIBITION [None]
  - HAEMARTHROSIS [None]
